FAERS Safety Report 22137603 (Version 1)
Quarter: 2023Q1

REPORT INFORMATION
  Report Type: Report from Study
  Country: GB (occurrence: GB)
  Receive Date: 20230325
  Receipt Date: 20230325
  Transmission Date: 20230418
  Serious: Yes (Other)
  Sender: FDA-Public Use
  Company Number: GB-002147023-NVSC2022GB124396

PATIENT
  Age: 13 Month
  Sex: Male

DRUGS (2)
  1. ZOLGENSMA [Suspect]
     Active Substance: ONASEMNOGENE ABEPARVOVEC-XIOI
     Indication: Spinal muscular atrophy
     Dosage: UNK UNK, ONCE/SINGLE
     Route: 042
     Dates: start: 20220510
  2. PREDNISOLONE [Concomitant]
     Active Substance: PREDNISOLONE
     Indication: Product used for unknown indication
     Dosage: UNK
     Route: 065

REACTIONS (3)
  - Hypoglycaemia [Unknown]
  - Platelet count decreased [Not Recovered/Not Resolved]
  - Liver function test increased [Not Recovered/Not Resolved]

NARRATIVE: CASE EVENT DATE: 20220517
